FAERS Safety Report 19546279 (Version 4)
Quarter: 2021Q4

REPORT INFORMATION
  Report Type: Spontaneous
  Country: GB (occurrence: GB)
  Receive Date: 20210714
  Receipt Date: 20211023
  Transmission Date: 20220303
  Serious: Yes (Hospitalization, Disabling, Other)
  Sender: FDA-Public Use
  Company Number: None

PATIENT
  Age: 70 Year
  Sex: Male

DRUGS (10)
  1. CLOPIDOGREL [Suspect]
     Active Substance: CLOPIDOGREL BISULFATE
     Indication: Chest pain
     Dosage: 300 MG, DAILY
     Route: 048
  2. CIPROFLOXACIN [Suspect]
     Active Substance: CIPROFLOXACIN
     Indication: Cellulitis
     Dosage: 750 MG, 2X PER DAY
     Route: 048
  3. METRONIDAZOLE [Interacting]
     Active Substance: METRONIDAZOLE
     Indication: Cellulitis
     Dosage: 400 MG, 3X PER DAY, TABLET
     Route: 048
  4. ASPIRIN [Interacting]
     Active Substance: ASPIRIN
     Indication: Chest pain
     Dosage: 75 MG, QD
  5. ERYTHROMYCIN [Interacting]
     Active Substance: ERYTHROMYCIN
     Indication: Cellulitis
     Dosage: 250 MG, 4X PER DAY
     Route: 048
  6. WARFARIN [Interacting]
     Active Substance: WARFARIN
     Indication: Pulmonary embolism
  7. MEROPENEM [Interacting]
     Active Substance: MEROPENEM
     Indication: Cellulitis
     Dosage: 2 G, 2X PER DAY
     Route: 042
  8. TEICOPLANIN [Interacting]
     Active Substance: TEICOPLANIN
     Indication: Cellulitis
     Dosage: 400 MG, 1X PER DAY
     Route: 030
  9. TEICOPLANIN [Concomitant]
     Active Substance: TEICOPLANIN
     Indication: Cellulitis
     Route: 030
  10. VITAMIN K [Concomitant]
     Active Substance: PHYTONADIONE

REACTIONS (12)
  - Drug interaction [Unknown]
  - Hyphaema [Recovered/Resolved with Sequelae]
  - International normalised ratio increased [Recovered/Resolved]
  - Intraocular pressure increased [Not Recovered/Not Resolved]
  - Decreased appetite [Unknown]
  - Coagulation time prolonged [Recovered/Resolved with Sequelae]
  - Eye pain [Recovered/Resolved with Sequelae]
  - Headache [Unknown]
  - Pyrexia [Unknown]
  - Nausea [Unknown]
  - Visual acuity reduced [Unknown]
  - Potentiating drug interaction [Unknown]
